FAERS Safety Report 11619600 (Version 1)
Quarter: 2015Q4

REPORT INFORMATION
  Report Type: Spontaneous
  Country: US (occurrence: US)
  Receive Date: 20151012
  Receipt Date: 20151012
  Transmission Date: 20160304
  Serious: No
  Sender: FDA-Public Use
  Company Number: US-TORRENT-00001008

PATIENT
  Age: 88 Year
  Sex: Female

DRUGS (1)
  1. ARIPIPRAZOLE. [Suspect]
     Active Substance: ARIPIPRAZOLE
     Indication: PRODUCT USED FOR UNKNOWN INDICATION
     Dosage: HALF TABLET PER DOSE

REACTIONS (5)
  - Confusional state [Unknown]
  - Wrong technique in product usage process [None]
  - Drug administration error [Unknown]
  - Incorrect dose administered [None]
  - Economic problem [None]
